FAERS Safety Report 5800688-4 (Version None)
Quarter: 2008Q3

REPORT INFORMATION
  Report Type: 
  Country: None (occurrence: None)
  Receive Date: 20080703
  Receipt Date: 20080625
  Transmission Date: 20090109
  Serious: Yes (Other)
  Sender: FDA-Public Use
  Company Number: GB-ROCHE-572730

PATIENT
  Sex: Female

DRUGS (3)
  1. ORLISTAT [Suspect]
     Indication: OBESITY
     Route: 048
     Dates: start: 20080109, end: 20080620
  2. GENERIC UNKNOWN [Concomitant]
     Indication: ASTHMA
     Dosage: REPORTED AS: ZENATIDE, LONG TERM DRUG
     Route: 055
  3. GENERIC UNKNOWN [Concomitant]
     Indication: DEPRESSION
     Dosage: REPORTED AS: ZIPIN, LONG TERM DRUG
     Route: 048

REACTIONS (2)
  - DEEP VEIN THROMBOSIS [None]
  - FOOT FRACTURE [None]
